FAERS Safety Report 12305222 (Version 1)
Quarter: 2016Q2

REPORT INFORMATION
  Report Type: Spontaneous
  Country: US (occurrence: US)
  Receive Date: 20160426
  Receipt Date: 20160426
  Transmission Date: 20160815
  Serious: Yes (Death, Other)
  Sender: FDA-Public Use
  Company Number: US-CELGENEUS-USA-2014114147

PATIENT

DRUGS (4)
  1. AZACITIDINE INJECTABLE [Suspect]
     Active Substance: AZACITIDINE
     Indication: ACUTE MYELOID LEUKAEMIA
     Dosage: 75 MILLIGRAM/SQ. METER
     Route: 058
  2. CYTARABINE. [Suspect]
     Active Substance: CYTARABINE
     Indication: ACUTE MYELOID LEUKAEMIA
     Route: 041
  3. CYTARABINE. [Suspect]
     Active Substance: CYTARABINE
     Dosage: 1 G/M2 DAYS 1, 3, 5
     Route: 065
  4. DAUNORUBICIN [Suspect]
     Active Substance: DAUNORUBICIN
     Indication: ACUTE MYELOID LEUKAEMIA
     Route: 065

REACTIONS (29)
  - Gastrointestinal disorder [Fatal]
  - Liver disorder [Unknown]
  - Respiratory distress [Unknown]
  - Neoplasm [Fatal]
  - Death [Fatal]
  - Leukopenia [Unknown]
  - Blood disorder [Unknown]
  - Disease recurrence [Unknown]
  - Thrombocytopenia [Unknown]
  - Electrocardiogram QT prolonged [Unknown]
  - Febrile neutropenia [Unknown]
  - Unevaluable event [Unknown]
  - Metabolic disorder [Unknown]
  - Mental disorder [Unknown]
  - Pyrexia [Unknown]
  - Lung infiltration [Unknown]
  - Cardiac disorder [Fatal]
  - Injury [Fatal]
  - Musculoskeletal disorder [Unknown]
  - Toxicity to various agents [Unknown]
  - Nervous system disorder [Fatal]
  - Renal disorder [Fatal]
  - Angiopathy [Fatal]
  - Acute respiratory failure [Unknown]
  - General symptom [Fatal]
  - Infection [Fatal]
  - Reproductive tract disorder [Unknown]
  - Respiratory disorder [Fatal]
  - Skin disorder [Unknown]
